FAERS Safety Report 5470101-8 (Version None)
Quarter: 2007Q3

REPORT INFORMATION
  Report Type: 
  Country: None (occurrence: None)
  Receive Date: 20070927
  Receipt Date: 20060925
  Transmission Date: 20080115
  Serious: No
  Sender: FDA-Public Use
  Company Number: US-AMGEN-KDL194822

PATIENT
  Sex: Male

DRUGS (6)
  1. NEUPOGEN [Suspect]
     Indication: DRUG USE FOR UNKNOWN INDICATION
     Route: 058
     Dates: start: 20060501
  2. INTERFERON ALFACON-1 [Concomitant]
     Route: 058
     Dates: start: 20060413
  3. RIBAVIRIN [Concomitant]
     Route: 065
     Dates: start: 20060413
  4. EFFEXOR [Concomitant]
     Route: 065
  5. PROCRIT [Concomitant]
     Route: 065
  6. NEXIUM [Concomitant]
     Route: 065

REACTIONS (2)
  - NAUSEA [None]
  - VOMITING [None]
